FAERS Safety Report 23367370 (Version 2)
Quarter: 2024Q2

REPORT INFORMATION
  Report Type: Spontaneous
  Country: PR (occurrence: PR)
  Receive Date: 20240104
  Receipt Date: 20240403
  Transmission Date: 20240716
  Serious: No
  Sender: FDA-Public Use
  Company Number: PR-BRISTOL-MYERS SQUIBB COMPANY-2024-002127

PATIENT
  Age: 85 Year
  Sex: Male
  Weight: 67.13 kg

DRUGS (2)
  1. REVLIMID [Suspect]
     Active Substance: LENALIDOMIDE
     Indication: Plasma cell myeloma
     Route: 048
     Dates: start: 20211102
  2. PROTEIN [Concomitant]
     Active Substance: PROTEIN
     Indication: Product used for unknown indication

REACTIONS (2)
  - Protein total decreased [Recovering/Resolving]
  - Diarrhoea [Not Recovered/Not Resolved]
